FAERS Safety Report 24359849 (Version 1)
Quarter: 2024Q3

REPORT INFORMATION
  Report Type: Report from Study
  Country: DE (occurrence: DE)
  Receive Date: 20240924
  Receipt Date: 20240924
  Transmission Date: 20241017
  Serious: Yes (Life-Threatening)
  Sender: ROCHE
  Company Number: DE-ROCHE-10000089116

PATIENT
  Age: 29 Year
  Sex: Female
  Weight: 65 kg

DRUGS (3)
  1. OCREVUS [Suspect]
     Active Substance: OCRELIZUMAB
     Indication: Multiple sclerosis
     Route: 042
     Dates: start: 20230807, end: 20230821
  2. KESIMPTA [Concomitant]
     Active Substance: OFATUMUMAB
     Dates: start: 20240606
  3. ZEPOSIA [Concomitant]
     Active Substance: OZANIMOD HYDROCHLORIDE
     Dates: start: 20230517, end: 20230613

REACTIONS (1)
  - Blood immunoglobulin G decreased [Not Recovered/Not Resolved]

NARRATIVE: CASE EVENT DATE: 20240118
